FAERS Safety Report 7789355-8 (Version None)
Quarter: 2011Q3

REPORT INFORMATION
  Report Type: 
  Country: None (occurrence: None)
  Receive Date: 20110930
  Receipt Date: 20110920
  Transmission Date: 20111222
  Serious: Yes (Hospitalization)
  Sender: FDA-Public Use
  Company Number: FR-GLAXOSMITHKLINE-B0748643A

PATIENT
  Sex: Female

DRUGS (5)
  1. VALACYCLOVIR HYDROCHLORIDE [Suspect]
     Indication: PRODUCT USED FOR UNKNOWN INDICATION
     Dosage: 500MG TWICE PER DAY
     Route: 048
     Dates: start: 20091222, end: 20091230
  2. ATARAX [Concomitant]
     Dosage: 25MG UNKNOWN
     Route: 065
     Dates: start: 20091222, end: 20091228
  3. DOXYCYCLINE [Suspect]
     Indication: PRODUCT USED FOR UNKNOWN INDICATION
     Route: 048
     Dates: start: 20091227, end: 20100103
  4. FLUCONAZOLE [Suspect]
     Indication: PRODUCT USED FOR UNKNOWN INDICATION
     Dosage: 50MG PER DAY
     Route: 048
     Dates: start: 20091222, end: 20100103
  5. EBASTINE [Concomitant]
     Dates: start: 20091227, end: 20100103

REACTIONS (1)
  - TOXIC EPIDERMAL NECROLYSIS [None]
